FAERS Safety Report 5955460-1 (Version None)
Quarter: 2008Q4

REPORT INFORMATION
  Report Type: 
  Country: None (occurrence: None)
  Receive Date: 20081113
  Receipt Date: 20081031
  Transmission Date: 20090506
  Serious: Yes (Other)
  Sender: FDA-Public Use
  Company Number: FON_00013_2008

PATIENT
  Sex: Male
  Weight: 60 kg

DRUGS (5)
  1. ROCALTROL [Suspect]
     Indication: CALCIUM DEFICIENCY
     Dosage: (0.25 ?G, DRUG TAKEN EVERY SEVERAL DAYS ORAL), (0.25 ?G QD ORAL)
     Route: 048
     Dates: start: 19910101, end: 20060101
  2. ROCALTROL [Suspect]
     Indication: CALCIUM DEFICIENCY
     Dosage: (0.25 ?G, DRUG TAKEN EVERY SEVERAL DAYS ORAL), (0.25 ?G QD ORAL)
     Route: 048
     Dates: start: 20060101
  3. CELLCEPT [Suspect]
     Indication: RENAL TRANSPLANT
     Dosage: (1.5 G ORAL)
     Route: 048
     Dates: start: 20060101
  4. TACROLIMUS [Concomitant]
  5. MEDROL [Concomitant]

REACTIONS (9)
  - CONDITION AGGRAVATED [None]
  - DYSPEPSIA [None]
  - HYPERCHLORHYDRIA [None]
  - MUSCLE SPASMS [None]
  - NO THERAPEUTIC RESPONSE [None]
  - REGURGITATION [None]
  - RENAL FAILURE [None]
  - RENAL TRANSPLANT [None]
  - SURGICAL PROCEDURE REPEATED [None]
